FAERS Safety Report 8838413 (Version 1)
Quarter: 2012Q4

REPORT INFORMATION
  Report Type: 
  Country: US (occurrence: US)
  Receive Date: 20121012
  Receipt Date: 20121012
  Transmission Date: 20130627
  Serious: Yes (Other)
  Sender: FDA-Public Use
  Company Number: CHPA2012US021126

PATIENT
  Age: 28 Year
  Sex: Female

DRUGS (2)
  1. MAALOX UNKNOWN [Suspect]
     Indication: DYSPEPSIA
     Dosage: Unk, Unk
     Route: 048
  2. MAALOX UNKNOWN [Suspect]
     Indication: DYSPEPSIA
     Dosage: Unk, Unk
     Route: 048
     Dates: start: 2006, end: 2010

REACTIONS (3)
  - Haemorrhage [Recovered/Resolved]
  - Placental disorder [Unknown]
  - Exposure during pregnancy [Recovered/Resolved]
